FAERS Safety Report 8168741-0 (Version None)
Quarter: 2012Q1

REPORT INFORMATION
  Report Type: 
  Country: None (occurrence: None)
  Receive Date: 20120227
  Receipt Date: 20120221
  Transmission Date: 20120608
  Serious: No
  Sender: FDA-Public Use
  Company Number: US-PFIZER INC-2012047123

PATIENT
  Sex: Male
  Weight: 107 kg

DRUGS (3)
  1. GEODON [Suspect]
     Indication: BIPOLAR DISORDER
     Dosage: 40 MG IN MORNING, 80 MG AT NIGHT)
     Route: 048
     Dates: start: 20110601
  2. GEODON [Suspect]
     Indication: INSOMNIA
     Dosage: UNK, 2X/DAY
  3. WELLBUTRIN [Concomitant]
     Indication: DEPRESSION
     Dosage: 300 MG, DAILY
     Route: 048

REACTIONS (1)
  - INSOMNIA [None]
